FAERS Safety Report 8010332-6 (Version None)
Quarter: 2011Q4

REPORT INFORMATION
  Report Type: 
  Country: None (occurrence: None)
  Receive Date: 20111221
  Receipt Date: 20111216
  Transmission Date: 20120403
  Serious: No
  Sender: FDA-Public Use
  Company Number: ACO_28454_2011

PATIENT
  Age: 44 Year
  Sex: Male

DRUGS (7)
  1. MULTIVITAMIN /00831701/ (VITAMINS NOS) [Concomitant]
  2. LISINOPRIL [Concomitant]
  3. RAMIPRIL [Concomitant]
  4. AMPYRA [Suspect]
     Indication: PRODUCT USED FOR UNKNOWN INDICATION
     Dates: start: 20111001, end: 20111121
  5. FLEXERIL /00428402/ (CYCLOBENZAPRINE HYDROCHLORIDE) [Concomitant]
  6. LYRICA [Concomitant]
  7. TRAMADOL HCL [Concomitant]

REACTIONS (5)
  - DRUG INEFFECTIVE [None]
  - CONVULSION [None]
  - MUSCULOSKELETAL STIFFNESS [None]
  - DYSPNOEA [None]
  - HYPOKINESIA [None]
